FAERS Safety Report 7389913-9 (Version None)
Quarter: 2011Q2

REPORT INFORMATION
  Report Type: 
  Country: None (occurrence: None)
  Receive Date: 20110401
  Receipt Date: 20110323
  Transmission Date: 20111010
  Serious: Yes (Hospitalization)
  Sender: FDA-Public Use
  Company Number: FR-ASTRAZENECA-2011SE17054

PATIENT
  Age: 54 Year
  Sex: Male

DRUGS (6)
  1. PARACETAMOL [Concomitant]
     Indication: ANALGESIC THERAPY
     Dosage: 1 TO 2 GMS PER DAY
     Route: 048
     Dates: end: 20110112
  2. PROPOFAN [Suspect]
     Route: 048
     Dates: start: 20101222, end: 20110112
  3. TERCIAN [Suspect]
     Route: 048
     Dates: start: 20101222, end: 20110112
  4. ATHYMIL [Suspect]
     Route: 048
     Dates: start: 20101221, end: 20110112
  5. SOLUPRED [Concomitant]
     Route: 048
     Dates: start: 20101129, end: 20110112
  6. NEXIUM [Suspect]
     Indication: PROPHYLAXIS AGAINST GASTROINTESTINAL ULCER
     Route: 048
     Dates: start: 20101129, end: 20110112

REACTIONS (1)
  - LIVER INJURY [None]
